FAERS Safety Report 7236172-3 (Version None)
Quarter: 2011Q1

REPORT INFORMATION
  Report Type: 
  Country: None (occurrence: None)
  Receive Date: 20110111
  Receipt Date: 20110106
  Transmission Date: 20110831
  Serious: Yes (Other)
  Sender: FDA-Public Use
  Company Number: NSR_00119_2011

PATIENT
  Age: 58 Year
  Sex: Female

DRUGS (5)
  1. FLUOXETINE [Concomitant]
  2. FLUOXETINE [Suspect]
     Indication: PRODUCT USED FOR UNKNOWN INDICATION
     Dosage: 40 MG QD ORAL
     Route: 048
     Dates: start: 20101202
  3. SIMVASTATIN [Concomitant]
  4. DIAZEPAM [Concomitant]
  5. IMIPRAMINE [Concomitant]

REACTIONS (7)
  - FATIGUE [None]
  - PARAESTHESIA [None]
  - CONFUSIONAL STATE [None]
  - DIZZINESS [None]
  - PRODUCT QUALITY ISSUE [None]
  - DRUG WITHDRAWAL SYNDROME [None]
  - PRODUCT SUBSTITUTION ISSUE [None]
